FAERS Safety Report 17997312 (Version 1)
Quarter: 2020Q3

REPORT INFORMATION
  Report Type: Other
  Country: CA (occurrence: CA)
  Receive Date: 20200709
  Receipt Date: 20200709
  Transmission Date: 20201103
  Serious: Yes (Death, Other)
  Sender: FDA-Public Use
  Company Number: CA-APOTEX-2020AP012919

PATIENT
  Age: 68 Year
  Sex: Male

DRUGS (12)
  1. ESBRIET [Suspect]
     Active Substance: PIRFENIDONE
     Dosage: 2403 MILLIGRAM, QD
     Route: 048
  2. MEDROL [Concomitant]
     Active Substance: METHYLPREDNISOLONE
     Indication: PRODUCT USED FOR UNKNOWN INDICATION
     Dosage: 4 MILLIGRAM, QD
     Route: 065
  3. TECTA [Concomitant]
     Active Substance: PANTOPRAZOLE MAGNESIUM
     Indication: PRODUCT USED FOR UNKNOWN INDICATION
     Dosage: 40 MILLIGRAM, QD
     Route: 065
  4. ESBRIET [Suspect]
     Active Substance: PIRFENIDONE
     Indication: IDIOPATHIC PULMONARY FIBROSIS
     Dosage: 534 MILLIGRAM, TID
     Route: 048
  5. OXYGEN. [Concomitant]
     Active Substance: OXYGEN
     Indication: PRODUCT USED FOR UNKNOWN INDICATION
     Dosage: 2 LITER
     Route: 065
  6. ACETYLSALICYLIC ACID [Suspect]
     Active Substance: ASPIRIN
     Indication: PRODUCT USED FOR UNKNOWN INDICATION
     Dosage: 81 MILLIGRAM, QD
     Route: 065
  7. ESBRIET [Suspect]
     Active Substance: PIRFENIDONE
     Dosage: 267 MILLIGRAM, TID
     Route: 048
  8. METOPROLOL. [Concomitant]
     Active Substance: METOPROLOL
     Indication: PRODUCT USED FOR UNKNOWN INDICATION
     Dosage: 12.5 MILLIGRAM, BID
     Route: 065
  9. TELMISARTAN. [Concomitant]
     Active Substance: TELMISARTAN
     Indication: PRODUCT USED FOR UNKNOWN INDICATION
     Dosage: 80 MILLIGRAM, QD
     Route: 065
  10. ESBRIET [Suspect]
     Active Substance: PIRFENIDONE
     Dosage: 801 MILLIGRAM, TID
     Route: 048
  11. CLOPIDOGREL [Suspect]
     Active Substance: CLOPIDOGREL BISULFATE
     Indication: PRODUCT USED FOR UNKNOWN INDICATION
     Dosage: 75 MILLIGRAM, QD
     Route: 065
  12. ROSUVASTATIN. [Concomitant]
     Active Substance: ROSUVASTATIN
     Indication: PRODUCT USED FOR UNKNOWN INDICATION
     Dosage: 40 MILLIGRAM, QD
     Route: 065

REACTIONS (19)
  - Rash pruritic [Fatal]
  - Decreased appetite [Fatal]
  - Cough [Fatal]
  - Hypogeusia [Fatal]
  - Muscle spasms [Fatal]
  - Nausea [Fatal]
  - Fatigue [Fatal]
  - Pneumonia [Fatal]
  - Rash [Fatal]
  - Rhinorrhoea [Fatal]
  - Dyspepsia [Fatal]
  - Weight decreased [Fatal]
  - Contusion [Fatal]
  - Death [Fatal]
  - Oxygen saturation decreased [Fatal]
  - Nasopharyngitis [Fatal]
  - Productive cough [Fatal]
  - Fall [Fatal]
  - Dyspnoea [Fatal]
